FAERS Safety Report 4366389-7 (Version None)
Quarter: 2004Q2

REPORT INFORMATION
  Report Type: 
  Country: None (occurrence: None)
  Receive Date: 20040526
  Receipt Date: 20040526
  Transmission Date: 20050107
  Serious: Yes (Other)
  Sender: FDA-Public Use
  Company Number: None

PATIENT
  Age: 30 Year
  Sex: Female
  Weight: 58.8 kg

DRUGS (3)
  1. OXYCODONE (GENERIC) [Suspect]
     Indication: ABDOMINAL PAIN
     Dosage: 80 MG PO BID
     Route: 048
     Dates: start: 20040426, end: 20040526
  2. OXYCODONE (GENERIC) [Suspect]
     Indication: TUBEROUS SCLEROSIS
     Dosage: 80 MG PO BID
     Route: 048
     Dates: start: 20040426, end: 20040526
  3. OXY IR [Concomitant]

REACTIONS (2)
  - DRUG EFFECT DECREASED [None]
  - PHARMACEUTICAL PRODUCT COMPLAINT [None]
